FAERS Safety Report 24938171 (Version 1)
Quarter: 2025Q1

REPORT INFORMATION
  Report Type: Spontaneous
  Country: US (occurrence: None)
  Receive Date: 20250206
  Receipt Date: 20250206
  Transmission Date: 20250409
  Serious: Yes (Life-Threatening, Hospitalization)
  Sender: FDA-CTU
  Company Number: None

PATIENT
  Age: 51 Year
  Sex: Male

DRUGS (2)
  1. TACROLIMUS [Suspect]
     Active Substance: TACROLIMUS
     Indication: Liver transplant
     Route: 048
     Dates: start: 20211209
  2. MYCOPHENOLIC ACID [Suspect]
     Active Substance: MYCOPHENOLIC ACID
     Indication: Liver transplant
     Dosage: FREQUENCY : TWICE A DAY;?
     Dates: start: 20240718

REACTIONS (5)
  - COVID-19 [None]
  - Streptococcal infection [None]
  - Sepsis [None]
  - Pneumonia [None]
  - Pulmonary function test decreased [None]

NARRATIVE: CASE EVENT DATE: 20250116
